FAERS Safety Report 9624950 (Version 2)
Quarter: 2013Q4

REPORT INFORMATION
  Report Type: Spontaneous
  Country: US (occurrence: US)
  Receive Date: 20131016
  Receipt Date: 20131119
  Transmission Date: 20140711
  Serious: No
  Sender: FDA-Public Use
  Company Number: US-BIOGENIDEC-2013BI097501

PATIENT
  Age: 47 Year
  Sex: Female

DRUGS (12)
  1. TECFIDERA [Suspect]
     Indication: MULTIPLE SCLEROSIS
     Route: 048
  2. TECFIDERA [Suspect]
     Indication: MULTIPLE SCLEROSIS
     Route: 048
     Dates: start: 201307, end: 20130823
  3. ASPRIN [Concomitant]
     Indication: MIDDLE INSOMNIA
  4. ASPRIN [Concomitant]
     Indication: FEELING ABNORMAL
  5. ASPRIN [Concomitant]
     Indication: DYSPEPSIA
  6. ASPRIN [Concomitant]
     Indication: FLUSHING
  7. ASPRIN [Concomitant]
     Indication: DIARRHOEA
  8. ASPRIN [Concomitant]
     Indication: VOMITING
  9. ASPRIN [Concomitant]
     Indication: NAUSEA
  10. LOESTRIN [Concomitant]
  11. ORACEA [Concomitant]
  12. IMMODIUM [Concomitant]

REACTIONS (3)
  - Thrombophlebitis superficial [Recovered/Resolved]
  - Local swelling [Recovered/Resolved]
  - Joint swelling [Recovered/Resolved]
